FAERS Safety Report 9496840 (Version 1)
Quarter: 2013Q3

REPORT INFORMATION
  Report Type: Spontaneous
  Country: CN (occurrence: CN)
  Receive Date: 20130904
  Receipt Date: 20130904
  Transmission Date: 20140515
  Serious: Yes (Other)
  Sender: FDA-Public Use
  Company Number: CN-PFIZER INC-2013251382

PATIENT
  Age: 79 Year
  Sex: Male
  Weight: 59 kg

DRUGS (1)
  1. SOLU-MEDROL [Suspect]
     Indication: INFLAMMATION
     Dosage: 40 MG, 2X/DAY
     Route: 041
     Dates: start: 20120228, end: 20120303

REACTIONS (1)
  - Delirium [Recovering/Resolving]
